FAERS Safety Report 14005237 (Version 1)
Quarter: 2017Q3

REPORT INFORMATION
  Report Type: Report from Study
  Country: None (occurrence: US)
  Receive Date: 20170922
  Receipt Date: 20170922
  Transmission Date: 20171128
  Serious: Yes (Other)
  Sender: FDA-Public Use
  Company Number: US-ABBVIE-17K-163-2108597-00

PATIENT
  Sex: Female

DRUGS (1)
  1. HUMIRA [Suspect]
     Active Substance: ADALIMUMAB
     Indication: ANKYLOSING SPONDYLITIS
     Route: 058

REACTIONS (6)
  - Carpal tunnel syndrome [Recovering/Resolving]
  - Rheumatoid arthritis [Recovering/Resolving]
  - Bone marrow oedema [Unknown]
  - Ligament rupture [Unknown]
  - Drug level decreased [Recovering/Resolving]
  - White blood cell count decreased [Unknown]
